FAERS Safety Report 16189002 (Version 1)
Quarter: 2019Q2

REPORT INFORMATION
  Report Type: Spontaneous
  Country: US (occurrence: US)
  Receive Date: 20190308
  Receipt Date: 20190308
  Transmission Date: 20190711
  Serious: No
  Sender: FDA-Public Use
  Company Number: None

PATIENT
  Age: 34 Year
  Sex: Female
  Weight: 58.51 kg

DRUGS (1)
  1. MESELAMINE 1000MG SUPPOSITORIES [Suspect]
     Active Substance: MESALAMINE
     Indication: PROCTITIS ULCERATIVE
     Route: 054
     Dates: start: 20190201

REACTIONS (7)
  - Headache [None]
  - Abdominal pain [None]
  - Rectal tenesmus [None]
  - Anal incontinence [None]
  - Flatulence [None]
  - Product substitution issue [None]
  - Insomnia [None]

NARRATIVE: CASE EVENT DATE: 20190201
